FAERS Safety Report 7808380-1 (Version None)
Quarter: 2011Q4

REPORT INFORMATION
  Report Type: 
  Country: None (occurrence: None)
  Receive Date: 20111007
  Receipt Date: 20110926
  Transmission Date: 20120403
  Serious: Yes (Death)
  Sender: FDA-Public Use
  Company Number: OMPQ-NO-1108S-0961

PATIENT
  Age: 62 Year
  Sex: Male

DRUGS (8)
  1. WARFARIN SODIUM [Concomitant]
  2. ISOLEUCINE (LIVACT) (ISOLEUCINE) [Concomitant]
  3. INDERAL [Concomitant]
  4. ALDACTONE [Concomitant]
  5. OMEPRAZOLE (OMEPRAL) (OMEPRAZOLE) [Concomitant]
  6. OMNIPAQUE 70 [Suspect]
     Indication: HEPATIC NEOPLASM
     Dosage: 143 ML, SINGLE DOSE, INTRAVENOUS
     Route: 042
     Dates: start: 20110824, end: 20110824
  7. MONILAC (LACTULOSE) [Concomitant]
  8. FUROSEMIDE (LASIX) (FUROSEMIDE) [Concomitant]

REACTIONS (6)
  - HEPATIC FAILURE [None]
  - ACIDOSIS [None]
  - HEPATIC ENCEPHALOPATHY [None]
  - DISSEMINATED INTRAVASCULAR COAGULATION [None]
  - CONTINUOUS HAEMODIAFILTRATION [None]
  - ANAPHYLACTOID SHOCK [None]
